FAERS Safety Report 7806910-7 (Version None)
Quarter: 2011Q4

REPORT INFORMATION
  Report Type: 
  Country: None (occurrence: None)
  Receive Date: 20111011
  Receipt Date: 20111004
  Transmission Date: 20120403
  Serious: Yes (Other)
  Sender: FDA-Public Use
  Company Number: PHHY2011GB87680

PATIENT
  Age: 20 Year
  Sex: Male

DRUGS (2)
  1. MIRTAZAPINE [Suspect]
     Dosage: UNK UKN, UNK
     Route: 048
     Dates: start: 20110922
  2. TRIMETHOPRIM [Concomitant]
     Dosage: UNK UKN, UNK
     Dates: start: 20110919, end: 20110924

REACTIONS (3)
  - TREMOR [None]
  - FEAR [None]
  - CHILLS [None]
